FAERS Safety Report 12678446 (Version 1)
Quarter: 2016Q3

REPORT INFORMATION
  Report Type: Spontaneous
  Country: US (occurrence: US)
  Receive Date: 20160823
  Receipt Date: 20160823
  Transmission Date: 20161109
  Serious: Yes (Other)
  Sender: FDA-Public Use
  Company Number: US-BAYER-2016-145740

PATIENT
  Sex: Female

DRUGS (2)
  1. CORICIDIN HBP CHEST CONGESTION AND COUGH [Suspect]
     Active Substance: DEXTROMETHORPHAN HYDROBROMIDE\GUAIFENESIN
     Indication: RHINORRHOEA
     Dosage: 2 DF, ONCE
     Route: 048
     Dates: start: 20160726, end: 20160726
  2. CORICIDIN HBP CHEST CONGESTION AND COUGH [Suspect]
     Active Substance: DEXTROMETHORPHAN HYDROBROMIDE\GUAIFENESIN
     Indication: HEADACHE

REACTIONS (3)
  - Headache [Not Recovered/Not Resolved]
  - Product use issue [None]
  - Hemianaesthesia [Not Recovered/Not Resolved]

NARRATIVE: CASE EVENT DATE: 20160726
